FAERS Safety Report 11010527 (Version 1)
Quarter: 2015Q2

REPORT INFORMATION
  Report Type: Other
  Country: GB (occurrence: GB)
  Receive Date: 20150410
  Receipt Date: 20150410
  Transmission Date: 20150821
  Serious: Yes (Other)
  Sender: FDA-Public Use
  Company Number: GB-PERRIGO-15GB003450

PATIENT
  Sex: Male

DRUGS (1)
  1. NAPROXEN 250MG 16028/0144 [Suspect]
     Active Substance: NAPROXEN
     Indication: OSTEOARTHRITIS
     Dosage: 1 DF, TID
     Route: 065

REACTIONS (4)
  - Lip swelling [Not Recovered/Not Resolved]
  - Pruritus [Not Recovered/Not Resolved]
  - Rash [Not Recovered/Not Resolved]
  - Swollen tongue [Not Recovered/Not Resolved]
